FAERS Safety Report 6112099-5 (Version None)
Quarter: 2009Q1

REPORT INFORMATION
  Report Type: 
  Country: None (occurrence: None)
  Receive Date: 20090310
  Receipt Date: 20090303
  Transmission Date: 20090719
  Serious: Yes (Hospitalization, Other)
  Sender: FDA-Public Use
  Company Number: US025433

PATIENT
  Age: 78 Year
  Sex: Male
  Weight: 87.9978 kg

DRUGS (6)
  1. TREANDA [Suspect]
     Indication: NON-HODGKIN'S LYMPHOMA
     Dosage: 252 MG DAYS 1 AND 2 EVERY 21 DAYS QD INTRAVENOUS
     Route: 042
     Dates: start: 20090113, end: 20090204
  2. TREANDA [Suspect]
     Indication: NON-HODGKIN'S LYMPHOMA
     Dosage: 120 MG/M2 CYCLE 2 QD INTRAVENOUS
     Route: 042
     Dates: start: 20090203, end: 20090204
  3. BENADRYL [Concomitant]
  4. TYLENOL (CAPLET) [Concomitant]
  5. ALOXI [Concomitant]
  6. DECADRON [Concomitant]

REACTIONS (8)
  - BLOOD GLUCOSE INCREASED [None]
  - BLOOD PRESSURE DECREASED [None]
  - CHILLS [None]
  - HYPERCALCAEMIA [None]
  - HYPOCALCAEMIA [None]
  - LOSS OF CONSCIOUSNESS [None]
  - RENAL FAILURE [None]
  - RENAL TUBULAR NECROSIS [None]
